FAERS Safety Report 9154644 (Version 2)
Quarter: 2012Q4

REPORT INFORMATION
  Report Type: Spontaneous
  Country: US (occurrence: None)
  Receive Date: 20121009
  Receipt Date: 20121009
  Transmission Date: 20130627
  Serious: Yes (Other)
  Sender: FDA-Public Use
  Company Number: AUR-APL-2012-01959

PATIENT
  Sex: Female

DRUGS (1)
  1. CARISOPRODOL (CARISOPRODOL) [Suspect]
     Indication: DRUG USE FOR UNKNOWN INDICATION

REACTIONS (3)
  - Homicidal ideation [None]
  - Mental disorder [None]
  - Drug ineffective [None]
